FAERS Safety Report 5032884-0 (Version None)
Quarter: 2006Q2

REPORT INFORMATION
  Report Type: 
  Country: None (occurrence: None)
  Receive Date: 20060622
  Receipt Date: 20060609
  Transmission Date: 20061013
  Serious: Yes (Other)
  Sender: FDA-Public Use
  Company Number: PHEH2006US07641

PATIENT
  Age: 71 Year
  Sex: Female
  Weight: 51.7 kg

DRUGS (12)
  1. NEXIUM [Concomitant]
     Dosage: 40 UNK, UNK
  2. ZOFRAN [Concomitant]
  3. DEXAMETHASONE TAB [Concomitant]
  4. GEMZAR [Concomitant]
  5. AROMASIN [Concomitant]
  6. LISINOPRIL [Concomitant]
  7. COREG [Concomitant]
  8. SIMVASTATIN [Concomitant]
     Dosage: 40 UNK, UNK
  9. POTASSIUM CHLORIDE [Concomitant]
  10. FOLIC ACID [Concomitant]
  11. MEGACE [Concomitant]
  12. ZOMETA [Suspect]
     Indication: METASTASES TO BONE
     Dosage: 4 UNK, 4WKS
     Dates: start: 20050815, end: 20060508

REACTIONS (5)
  - ABSCESS [None]
  - IMPAIRED HEALING [None]
  - OSTEOMYELITIS CHRONIC [None]
  - OSTEONECROSIS [None]
  - TOOTH EXTRACTION [None]
